FAERS Safety Report 25594547 (Version 1)
Quarter: 2025Q3

REPORT INFORMATION
  Report Type: Spontaneous
  Country: CN (occurrence: CN)
  Receive Date: 20250723
  Receipt Date: 20250723
  Transmission Date: 20251021
  Serious: Yes (Hospitalization)
  Sender: BEIGENE
  Company Number: CN-BEIGENE-BGN-2025-011727

PATIENT
  Age: 66 Year
  Weight: 63 kg

DRUGS (12)
  1. TISLELIZUMAB [Suspect]
     Active Substance: TISLELIZUMAB
     Indication: Lung neoplasm malignant
     Dosage: 200 MILLIGRAM, Q3WK
  2. TISLELIZUMAB [Suspect]
     Active Substance: TISLELIZUMAB
     Dosage: 200 MILLIGRAM, Q3WK
     Route: 041
  3. TISLELIZUMAB [Suspect]
     Active Substance: TISLELIZUMAB
     Dosage: 200 MILLIGRAM, Q3WK
     Route: 041
  4. TISLELIZUMAB [Suspect]
     Active Substance: TISLELIZUMAB
     Dosage: 200 MILLIGRAM, Q3WK
  5. DOCETAXEL [Concomitant]
     Active Substance: DOCETAXEL
     Indication: Lung neoplasm malignant
  6. DOCETAXEL [Concomitant]
     Active Substance: DOCETAXEL
     Route: 041
  7. DOCETAXEL [Concomitant]
     Active Substance: DOCETAXEL
     Route: 041
  8. DOCETAXEL [Concomitant]
     Active Substance: DOCETAXEL
  9. NEDAPLATIN [Concomitant]
     Active Substance: NEDAPLATIN
     Indication: Lung neoplasm malignant
  10. NEDAPLATIN [Concomitant]
     Active Substance: NEDAPLATIN
     Route: 041
  11. NEDAPLATIN [Concomitant]
     Active Substance: NEDAPLATIN
     Route: 041
  12. NEDAPLATIN [Concomitant]
     Active Substance: NEDAPLATIN

REACTIONS (1)
  - Myelosuppression [Recovering/Resolving]
